FAERS Safety Report 14745563 (Version 1)
Quarter: 2018Q2

REPORT INFORMATION
  Report Type: Spontaneous
  Country: US (occurrence: US)
  Receive Date: 20180405
  Receipt Date: 20180405
  Transmission Date: 20180711
  Serious: No
  Sender: FDA-Public Use
  Company Number: None

PATIENT
  Age: 59 Year
  Sex: Female
  Weight: 47.17 kg

DRUGS (14)
  1. HYDROCODONE [Concomitant]
     Active Substance: HYDROCODONE
  2. MOBIC [Concomitant]
     Active Substance: MELOXICAM
  3. SOMA [Concomitant]
     Active Substance: CARISOPRODOL
  4. CALCIUM +D [Concomitant]
     Active Substance: CALCIUM\VITAMIN D
  5. REGLAN [Concomitant]
     Active Substance: METOCLOPRAMIDE HYDROCHLORIDE
  6. WELLBUTRIN SR [Concomitant]
     Active Substance: BUPROPION HYDROCHLORIDE
  7. EXFORGE [Concomitant]
     Active Substance: AMLODIPINE BESYLATE\VALSARTAN
  8. PLAQUENIL [Concomitant]
     Active Substance: HYDROXYCHLOROQUINE SULFATE
  9. UP AND UP NICOTINE [Suspect]
     Active Substance: NICOTINE
     Indication: SMOKING CESSATION THERAPY
     Dosage: ?          QUANTITY:1 DF DOSAGE FORM;?
     Route: 061
     Dates: start: 20170812, end: 20170814
  10. XANAX [Concomitant]
     Active Substance: ALPRAZOLAM
  11. MS CONTIN [Concomitant]
     Active Substance: MORPHINE SULFATE
  12. POTASSIUM [Concomitant]
     Active Substance: POTASSIUM
  13. PRILOSEC [Concomitant]
     Active Substance: OMEPRAZOLE MAGNESIUM
  14. MAGNESIUM [Concomitant]
     Active Substance: MAGNESIUM

REACTIONS (3)
  - Application site erythema [None]
  - Application site pruritus [None]
  - Urticaria [None]

NARRATIVE: CASE EVENT DATE: 20170813
